FAERS Safety Report 5083455-1 (Version None)
Quarter: 2006Q3

REPORT INFORMATION
  Report Type: 
  Country: None (occurrence: None)
  Receive Date: 20060818
  Receipt Date: 20060809
  Transmission Date: 20061208
  Serious: Yes (Hospitalization)
  Sender: FDA-Public Use
  Company Number: 2006UW15891

PATIENT
  Age: 51 Year
  Sex: Female

DRUGS (14)
  1. CRESTOR [Suspect]
     Route: 048
  2. ALBUTEROL [Concomitant]
  3. CARISOPRODOL [Concomitant]
     Dosage: PRN
     Route: 048
  4. ATENOLOL [Concomitant]
     Route: 048
  5. AMBIEN [Concomitant]
  6. SINGULAIR [Concomitant]
  7. ALPRAZOLAM [Concomitant]
     Dosage: 2 TABLETS PRN
     Route: 048
  8. DIAZEPAM [Concomitant]
  9. APAP W/ CODEINE [Concomitant]
     Indication: PAIN
     Dosage: 300/30 MG PRN
  10. ASCORBIC ACID [Concomitant]
  11. CALCIUM CITRATE [Concomitant]
  12. VITAMIN B COMPLEX CAP [Concomitant]
  13. DAILY VITAMIN [Concomitant]
  14. BENICAR [Concomitant]

REACTIONS (5)
  - ACCIDENTAL OVERDOSE [None]
  - DEHYDRATION [None]
  - FALL [None]
  - MENTAL STATUS CHANGES [None]
  - RHABDOMYOLYSIS [None]
